FAERS Safety Report 15732716 (Version 1)
Quarter: 2018Q4

REPORT INFORMATION
  Report Type: Spontaneous
  Country: US (occurrence: US)
  Receive Date: 20181217
  Receipt Date: 20181217
  Transmission Date: 20190205
  Serious: No
  Sender: FDA-Public Use
  Company Number: US-BAYER-2018-237652

PATIENT
  Age: 69 Year
  Sex: Female
  Weight: 88 kg

DRUGS (6)
  1. ANTI DIABETES [Concomitant]
  2. MIRALAX [Suspect]
     Active Substance: POLYETHYLENE GLYCOL 3350
     Indication: GASTROINTESTINAL DISORDER
     Dosage: ;I FILLED THE CAP TO THE WHITE LINE AND M
     Route: 048
     Dates: start: 20181212, end: 20181217
  3. CURCUMIN [CURCUMA LONGA] [Concomitant]
  4. SYNTHROID [Concomitant]
     Active Substance: LEVOTHYROXINE SODIUM
  5. XANAX [Concomitant]
     Active Substance: ALPRAZOLAM
  6. PROBIOTIC [BIFIDOBACTERIUM LACTIS] [Concomitant]

REACTIONS (1)
  - Drug ineffective [Unknown]

NARRATIVE: CASE EVENT DATE: 20181212
